FAERS Safety Report 4511878-5 (Version None)
Quarter: 2004Q4

REPORT INFORMATION
  Report Type: 
  Country: None (occurrence: None)
  Receive Date: 20041129
  Receipt Date: 20041115
  Transmission Date: 20050328
  Serious: Yes (Hospitalization)
  Sender: FDA-Public Use
  Company Number: AU-JNJFOC-20041102372

PATIENT
  Age: 71 Year
  Sex: Female

DRUGS (3)
  1. RISPERDAL CONSTA [Suspect]
     Indication: SCHIZOPHRENIA
     Route: 030
     Dates: start: 20040107, end: 20040218
  2. AMISULPRIDE [Suspect]
     Indication: SCHIZOPHRENIA
  3. ARIPIPRAZOLE [Suspect]
     Indication: SCHIZOPHRENIA

REACTIONS (1)
  - DECUBITUS ULCER [None]
